FAERS Safety Report 6962684-3 (Version None)
Quarter: 2010Q3

REPORT INFORMATION
  Report Type: 
  Country: None (occurrence: None)
  Receive Date: 20100823
  Receipt Date: 20100514
  Transmission Date: 20110219
  Serious: Yes (Death, Hospitalization)
  Sender: FDA-Public Use
  Company Number: 8047917

PATIENT
  Sex: Male

DRUGS (1)
  1. CERTOLIZUMAB PEGOL (UCB, INC) [Suspect]
     Indication: CROHN'S DISEASE
     Dosage: (SUBCUTANEOUS)
     Route: 058
     Dates: start: 20090428, end: 20090527

REACTIONS (2)
  - DIARRHOEA HAEMORRHAGIC [None]
  - MYOCARDIAL INFARCTION [None]
